FAERS Safety Report 15503611 (Version 1)
Quarter: 2018Q4

REPORT INFORMATION
  Report Type: Report from Study
  Country: US (occurrence: US)
  Receive Date: 20181016
  Receipt Date: 20181016
  Transmission Date: 20190205
  Serious: No
  Sender: FDA-Public Use
  Company Number: US-AMGEN INC.-USASL2018127743

PATIENT
  Age: 49 Year
  Sex: Female

DRUGS (5)
  1. XERMELO [Concomitant]
     Active Substance: TELOTRISTAT ETHYL
     Indication: PALPITATIONS
     Dosage: 250 MG, TID
  2. SIMVASTATIN. [Concomitant]
     Active Substance: SIMVASTATIN
     Indication: CHEST PAIN
  3. AIMOVIG [Suspect]
     Active Substance: ERENUMAB-AOOE
     Indication: MIGRAINE PROPHYLAXIS
     Dosage: 140 MG, QMO
     Route: 065
     Dates: start: 20180731
  4. XERMELO [Concomitant]
     Active Substance: TELOTRISTAT ETHYL
     Indication: CHEST PAIN
  5. SIMVASTATIN. [Concomitant]
     Active Substance: SIMVASTATIN
     Indication: PALPITATIONS
     Dosage: 60 MG, QD

REACTIONS (2)
  - Chest pain [Recovered/Resolved]
  - Palpitations [Not Recovered/Not Resolved]

NARRATIVE: CASE EVENT DATE: 20180731
